FAERS Safety Report 19496968 (Version 1)
Quarter: 2021Q3

REPORT INFORMATION
  Report Type: Spontaneous
  Country: US (occurrence: US)
  Receive Date: 20210704
  Receipt Date: 20210704
  Transmission Date: 20211014
  Serious: Yes (Other)
  Sender: FDA-Public Use
  Company Number: None

PATIENT
  Age: 52 Year
  Sex: Female
  Weight: 101.25 kg

DRUGS (5)
  1. ALBUTEROL. [Concomitant]
     Active Substance: ALBUTEROL
  2. METFORMIN [Concomitant]
     Active Substance: METFORMIN HYDROCHLORIDE
  3. CAPRON DM [Suspect]
     Active Substance: DEXTROMETHORPHAN HYDROBROMIDE\PYRILAMINE MALEATE
     Indication: SINUSITIS
     Dosage: ?          QUANTITY:1 OUNCE(S);?
     Route: 048
     Dates: start: 20210518, end: 20210525
  4. ALKA?SELTZER [Concomitant]
     Active Substance: ANHYDROUS CITRIC ACID\ASPIRIN\SODIUM BICARBONATE
  5. AMLODEPINE [Concomitant]

REACTIONS (2)
  - Bacterial vaginosis [None]
  - Product odour abnormal [None]

NARRATIVE: CASE EVENT DATE: 20210518
